FAERS Safety Report 17624463 (Version 2)
Quarter: 2021Q3

REPORT INFORMATION
  Report Type: Spontaneous
  Country: US (occurrence: US)
  Receive Date: 20200403
  Receipt Date: 20210719
  Transmission Date: 20211014
  Serious: Yes (Other)
  Sender: FDA-Public Use
  Company Number: US-TEVA-2020-US-1217562

PATIENT

DRUGS (6)
  1. VALSARTAN/HYDROCHLOROTHIAZIDE MYLAN [Suspect]
     Active Substance: HYDROCHLOROTHIAZIDE\VALSARTAN
     Indication: HYPERTENSION
     Dosage: 160/25MG TABLETS
     Route: 065
     Dates: start: 20130323, end: 20140108
  2. VALSARTAN/HYDROCHLOROTHIAZIDE ACETRIS [Suspect]
     Active Substance: HYDROCHLOROTHIAZIDE\VALSARTAN
     Dosage: 320/25MG TABLETS
     Route: 065
     Dates: start: 20150921, end: 20171230
  3. VALSARTAN SOLCO [Suspect]
     Active Substance: VALSARTAN
     Indication: HYPERTENSION
     Route: 065
     Dates: start: 20171101, end: 20180718
  4. VALSARTAN/HYDROCHLOROTHIAZIDE SOLCO [Suspect]
     Active Substance: HYDROCHLOROTHIAZIDE\VALSARTAN
     Dosage: 320/25MG TABLETS
     Route: 065
     Dates: start: 20180605, end: 20180905
  5. VALSARTAN/HYDROCHLOROTHIAZIDE ACETRIS [Suspect]
     Active Substance: HYDROCHLOROTHIAZIDE\VALSARTAN
     Indication: HYPERTENSION
     Dosage: 320/25MG TABLETS
     Route: 065
     Dates: start: 20150309, end: 20180304
  6. VALSARTAN/HYDROCHLOROTHIAZIDE SOLCO [Suspect]
     Active Substance: HYDROCHLOROTHIAZIDE\VALSARTAN
     Indication: HYPERTENSION
     Dosage: 160/25MG TABLETS
     Route: 065
     Dates: start: 20170130, end: 20171101

REACTIONS (1)
  - Pancreatic carcinoma [Unknown]
